FAERS Safety Report 20364003 (Version 1)
Quarter: 2022Q1

REPORT INFORMATION
  Report Type: Spontaneous
  Country: JP (occurrence: JP)
  Receive Date: 20220121
  Receipt Date: 20220121
  Transmission Date: 20220424
  Serious: Yes (Hospitalization)
  Sender: FDA-Public Use
  Company Number: JP-GSKJP-JP2021JPN256755

PATIENT
  Sex: Female

DRUGS (6)
  1. BOTOX [Suspect]
     Active Substance: ONABOTULINUMTOXINA
     Indication: Torticollis
     Dosage: 62.5 UNITS, SINGLE
     Route: 030
     Dates: start: 20211209, end: 20211209
  2. BOTOX [Suspect]
     Active Substance: ONABOTULINUMTOXINA
     Dosage: 37.5 UNITS, SINGLE
     Route: 030
     Dates: start: 20211209, end: 20211209
  3. BOTOX [Suspect]
     Active Substance: ONABOTULINUMTOXINA
     Dosage: 100 UNITS, SINGLE
     Route: 030
     Dates: start: 20200624, end: 20200624
  4. ROTIGOTINE [Concomitant]
     Active Substance: ROTIGOTINE
     Indication: Parkinson^s disease
     Dosage: 13.5 MG
     Dates: start: 20200624
  5. FUROSEMIDE [Concomitant]
     Active Substance: FUROSEMIDE
     Indication: Oedema peripheral
     Dosage: 10 MG
     Route: 048
     Dates: start: 20200530
  6. LORAZEPAM [Concomitant]
     Active Substance: LORAZEPAM
     Indication: Insomnia
     Dosage: 0.5 MG
     Route: 048
     Dates: start: 20200529, end: 20200717

REACTIONS (5)
  - Decreased activity [Unknown]
  - Feeding disorder [Unknown]
  - Dysphonia [Unknown]
  - Dysphagia [Not Recovered/Not Resolved]
  - Laryngeal disorder [Unknown]

NARRATIVE: CASE EVENT DATE: 20211211
